FAERS Safety Report 4311111-3 (Version None)
Quarter: 2004Q1

REPORT INFORMATION
  Report Type: 
  Country: None (occurrence: None)
  Receive Date: 20040302
  Receipt Date: 20040218
  Transmission Date: 20041129
  Serious: Yes (Hospitalization)
  Sender: FDA-Public Use
  Company Number: 2004000902

PATIENT
  Age: 85 Year
  Sex: Female

DRUGS (13)
  1. LIPITOR [Suspect]
     Indication: HYPERLIPIDAEMIA
     Dosage: 20 MG (DAILY), ORAL
     Route: 048
     Dates: start: 20031209, end: 20031224
  2. FERROUS CITRATE [Suspect]
     Indication: ILL-DEFINED DISORDER
     Dosage: 100 MG (TWICE DAILY), ORAL
     Route: 048
     Dates: start: 20031219, end: 20031219
  3. NITROGLYCERIN [Concomitant]
  4. FUROSEMIDE [Concomitant]
  5. ISOSORBIDE DINITRATE (ISOSORBIDE DRINTRATE) [Concomitant]
  6. PIMOBENDAN (PIMPBENDAN) [Concomitant]
  7. AMLODIPINE BESITATE (ALMODIPINE BESITATE) [Concomitant]
  8. SPIRONOLACTONE [Concomitant]
  9. AZOSEMIDE (AZOSEMIDE) [Concomitant]
  10. DIGOXIN [Concomitant]
  11. BUFFERIN [Concomitant]
  12. TEPRENONE (TEPRENONE) [Concomitant]
  13. ZOPICLONE (ZOPICLONE0 [Concomitant]

REACTIONS (10)
  - ALANINE AMINOTRANSFERASE INCREASED [None]
  - ASPARTATE AMINOTRANSFERASE INCREASED [None]
  - BLOOD ALKALINE PHOSPHATASE INCREASED [None]
  - BLOOD CREATININE ABNORMAL [None]
  - BLOOD LACTATE DEHYDROGENASE INCREASED [None]
  - BLOOD SODIUM DECREASED [None]
  - BLOOD UREA INCREASED [None]
  - CORONARY ARTERY STENOSIS [None]
  - LABORATORY TEST ABNORMAL [None]
  - LIVER DISORDER [None]
